FAERS Safety Report 7038003-3 (Version None)
Quarter: 2010Q4

REPORT INFORMATION
  Report Type: 
  Country: None (occurrence: None)
  Receive Date: 20101011
  Receipt Date: 20101005
  Transmission Date: 20110411
  Serious: Yes (Life-Threatening, Hospitalization)
  Sender: FDA-Public Use
  Company Number: JP-ABBOTT-10P-087-0673145-00

PATIENT
  Sex: Female
  Weight: 48 kg

DRUGS (12)
  1. SEVOFRANE INHALATION [Suspect]
     Indication: GENERAL ANAESTHESIA
     Dosage: 2%
     Route: 055
     Dates: start: 20091026, end: 20091026
  2. PROPOFOL [Suspect]
     Indication: GENERAL ANAESTHESIA
     Route: 042
     Dates: start: 20091026, end: 20091026
  3. PROPOFOL [Suspect]
     Route: 042
     Dates: start: 20091026, end: 20091026
  4. REMIFENTANIL HYDROCHLORIDE [Suspect]
     Indication: GENERAL ANAESTHESIA
     Route: 042
     Dates: start: 20091026, end: 20091026
  5. NITROUS OXIDE [Suspect]
     Indication: GENERAL ANAESTHESIA
     Dosage: 2 L/MIN
     Dates: start: 20091026, end: 20091026
  6. LIDOCAINE [Suspect]
     Indication: GENERAL ANAESTHESIA
     Route: 042
     Dates: start: 20091026, end: 20091026
  7. LIDOCAINE [Suspect]
     Route: 042
     Dates: start: 20091026, end: 20091026
  8. VECURONIUM BROMIDE [Suspect]
     Indication: GENERAL ANAESTHESIA
     Route: 042
     Dates: start: 20091026, end: 20091026
  9. BETAMETHASONE [Suspect]
     Indication: GENERAL ANAESTHESIA
     Route: 030
     Dates: start: 20091026, end: 20091026
  10. DICLOFENAC SODIUM [Suspect]
     Indication: GENERAL ANAESTHESIA
     Route: 050
     Dates: start: 20091026, end: 20091026
  11. DROPERIDOL [Suspect]
     Indication: GENERAL ANAESTHESIA
     Route: 042
     Dates: start: 20091026, end: 20091026
  12. FLURBIPROFEN [Suspect]
     Indication: GENERAL ANAESTHESIA
     Route: 042
     Dates: start: 20091026, end: 20091026

REACTIONS (2)
  - HYPERTHERMIA MALIGNANT [None]
  - RHABDOMYOLYSIS [None]
